FAERS Safety Report 8155924-9 (Version None)
Quarter: 2012Q1

REPORT INFORMATION
  Report Type: 
  Country: None (occurrence: None)
  Receive Date: 20120216
  Receipt Date: 20120203
  Transmission Date: 20120608
  Serious: Yes (Life-Threatening)
  Sender: FDA-Public Use
  Company Number: 1000028225

PATIENT
  Sex: Male
  Weight: 84 kg

DRUGS (1)
  1. MEMANTINE HYDROCHLORIDE [Suspect]
     Dosage: 20 MG (20 MG, 1 IN 1 D), ORAL
     Route: 048
     Dates: start: 20080101, end: 20110101

REACTIONS (5)
  - GAIT DISTURBANCE [None]
  - FALL [None]
  - BALANCE DISORDER [None]
  - NO THERAPEUTIC RESPONSE [None]
  - FEMORAL NECK FRACTURE [None]
